FAERS Safety Report 11884208 (Version 1)
Quarter: 2016Q1

REPORT INFORMATION
  Report Type: Spontaneous
  Country: TR (occurrence: TR)
  Receive Date: 20160103
  Receipt Date: 20160103
  Transmission Date: 20160526
  Serious: Yes (Other)
  Sender: FDA-Public Use
  Company Number: TR-TEVA-622852ISR

PATIENT
  Age: 2 Month
  Sex: Female

DRUGS (3)
  1. DEXAMETHASONE. [Suspect]
     Active Substance: DEXAMETHASONE
     Indication: FAMILIAL HAEMOPHAGOCYTIC LYMPHOHISTIOCYTOSIS
     Route: 048
  2. ETOPOSIDE. [Suspect]
     Active Substance: ETOPOSIDE
     Indication: FAMILIAL HAEMOPHAGOCYTIC LYMPHOHISTIOCYTOSIS
     Route: 065
  3. CICLOSPORIN [Suspect]
     Active Substance: CYCLOSPORINE
     Indication: FAMILIAL HAEMOPHAGOCYTIC LYMPHOHISTIOCYTOSIS
     Route: 065

REACTIONS (2)
  - Aspergillus infection [Recovered/Resolved]
  - Nasal septum perforation [Recovered/Resolved]
